FAERS Safety Report 18987342 (Version 1)
Quarter: 2021Q1

REPORT INFORMATION
  Report Type: Spontaneous
  Country: CN (occurrence: CN)
  Receive Date: 20210309
  Receipt Date: 20210309
  Transmission Date: 20210420
  Serious: Yes (Other)
  Sender: FDA-Public Use
  Company Number: CN-SA-2021SA069634

PATIENT
  Age: 51 Year
  Sex: Female
  Weight: 53 kg

DRUGS (2)
  1. ELOXATIN [Suspect]
     Active Substance: OXALIPLATIN
     Indication: CHEMOTHERAPY
     Dosage: 200 MG, Q3W
     Route: 041
     Dates: start: 20210128, end: 20210128
  2. GLUCOSE [Concomitant]
     Active Substance: DEXTROSE
     Dosage: 250 ML (OXALIPLATIN 200 MG WITH 5PERCENT GLUCOSE 250 ML (CYCLE 2) AT 83 ML/H, AND THE INFUSION RATE
     Route: 042
     Dates: start: 20210128, end: 20210128

REACTIONS (4)
  - Asphyxia [Recovered/Resolved]
  - Chest discomfort [Recovered/Resolved]
  - Cyanosis [Recovered/Resolved]
  - Throat irritation [Recovered/Resolved]

NARRATIVE: CASE EVENT DATE: 20210128
